FAERS Safety Report 23333185 (Version 6)
Quarter: 2024Q3

REPORT INFORMATION
  Report Type: Report from Study
  Country: RU (occurrence: RU)
  Receive Date: 20231222
  Receipt Date: 20240805
  Transmission Date: 20241016
  Serious: Yes (Hospitalization)
  Sender: NOVARTIS
  Company Number: RU-002147023-NVSC2023RU271969

PATIENT
  Age: 75 Year
  Sex: Female
  Weight: 104 kg

DRUGS (16)
  1. KISQALI [Suspect]
     Active Substance: RIBOCICLIB
     Indication: Hormone receptor positive HER2 negative breast cancer
     Dosage: 600 MG
     Route: 048
     Dates: start: 20221208, end: 20231109
  2. KISQALI [Suspect]
     Active Substance: RIBOCICLIB
     Dosage: 600 MG
     Route: 048
     Dates: start: 20231019, end: 20231109
  3. KISQALI [Suspect]
     Active Substance: RIBOCICLIB
     Dosage: 600 MG
     Route: 048
     Dates: start: 20231212, end: 20240313
  4. KISQALI [Suspect]
     Active Substance: RIBOCICLIB
     Dosage: 400 MG
     Route: 048
     Dates: start: 20240313, end: 20240411
  5. KISQALI [Suspect]
     Active Substance: RIBOCICLIB
     Dosage: 400 MG
     Route: 048
     Dates: start: 20240509
  6. METOPROLOL [Concomitant]
     Active Substance: METOPROLOL
     Indication: Hypertension
     Dosage: 50 MG, TID
     Route: 065
     Dates: start: 2001
  7. SPIRONOLACTONE [Concomitant]
     Active Substance: SPIRONOLACTONE
     Indication: Hypertension
     Dosage: 25 MG (IN THE MORNING)
     Route: 065
     Dates: start: 2004, end: 20231121
  8. EDARBI CLO [Concomitant]
     Indication: Hypertension
     Dosage: UNK
     Route: 065
     Dates: start: 20190301
  9. MOXONIDINE [Concomitant]
     Active Substance: MOXONIDINE
     Indication: Hypertension
     Dosage: UP TO 0.6 MG, QD
     Route: 065
     Dates: start: 20190301, end: 20231121
  10. TRIMETAZIDINE [Concomitant]
     Active Substance: TRIMETAZIDINE
     Indication: Hypertension
     Dosage: 35 MG, BID (TWO TIMES PER DAY AS THREE MONTHS COURSES)
     Route: 065
     Dates: start: 2011, end: 20231121
  11. HUMALOG [Concomitant]
     Active Substance: INSULIN LISPRO
     Indication: Type 2 diabetes mellitus
     Dosage: UNK (12 UNITS (TIMES PER DAY AND ADDITIONAL INJECTIONS IN CASE OF HIGH BLOOD SUGAR))
     Route: 065
     Dates: start: 20140910
  12. LEVEMIR [Concomitant]
     Active Substance: INSULIN DETEMIR
     Indication: Type 2 diabetes mellitus
     Dosage: UNK (30+ 30 UNITS)
     Route: 065
     Dates: start: 20170914
  13. METFORMIN [Concomitant]
     Active Substance: METFORMIN HYDROCHLORIDE
     Indication: Type 2 diabetes mellitus
     Dosage: 1000 MG, BID
     Route: 065
     Dates: start: 20170725
  14. THIOCTIC ACID [Concomitant]
     Active Substance: THIOCTIC ACID
     Indication: Type 2 diabetes mellitus
     Dosage: UNK
     Route: 065
     Dates: start: 20220831
  15. ZOPICLONE [Concomitant]
     Active Substance: ZOPICLONE
     Indication: Insomnia
     Dosage: UNK (7.5)
     Route: 065
     Dates: start: 20201015
  16. ANASTROZOLE [Concomitant]
     Active Substance: ANASTROZOLE
     Indication: Product used for unknown indication
     Dosage: UNK
     Route: 065
     Dates: start: 20231208

REACTIONS (3)
  - Pulmonary embolism [Recovering/Resolving]
  - Dyspnoea [Not Recovered/Not Resolved]
  - Glomerular filtration rate decreased [Recovering/Resolving]

NARRATIVE: CASE EVENT DATE: 20231108
